FAERS Safety Report 7817003-7 (Version None)
Quarter: 2011Q4

REPORT INFORMATION
  Report Type: 
  Country: None (occurrence: None)
  Receive Date: 20111017
  Receipt Date: 20111010
  Transmission Date: 20120403
  Serious: Yes (Other)
  Sender: FDA-Public Use
  Company Number: MX-SANOFI-AVENTIS-2011SA066458

PATIENT
  Age: 59 Year
  Sex: Female
  Weight: 79 kg

DRUGS (2)
  1. ARAVA [Suspect]
     Indication: RHEUMATOID ARTHRITIS
     Route: 048
     Dates: start: 20070101, end: 20110701
  2. ARAVA [Suspect]
     Route: 048
     Dates: start: 20110701

REACTIONS (5)
  - DYSLIPIDAEMIA [None]
  - HYPERTENSION [None]
  - GASTRITIS [None]
  - MACULE [None]
  - HEPATIC FUNCTION ABNORMAL [None]
